FAERS Safety Report 9869206 (Version 1)
Quarter: 2014Q1

REPORT INFORMATION
  Report Type: Spontaneous
  Country: FR (occurrence: FR)
  Receive Date: 20140205
  Receipt Date: 20140205
  Transmission Date: 20141002
  Serious: Yes (Death, Other)
  Sender: FDA-Public Use
  Company Number: FR-MERCK-1402FRA000419

PATIENT
  Age: 52 Year
  Sex: Female

DRUGS (1)
  1. CANCIDAS [Suspect]
     Indication: SYSTEMIC CANDIDA
     Dosage: 50 MG, QD
     Route: 042
     Dates: start: 20130217, end: 20130218

REACTIONS (3)
  - Septic shock [Fatal]
  - Infarction [Fatal]
  - Incorrect dosage administered [Unknown]
